FAERS Safety Report 4890875-4 (Version None)
Quarter: 2006Q1

REPORT INFORMATION
  Report Type: 
  Country: None (occurrence: None)
  Receive Date: 20060125
  Receipt Date: 20060113
  Transmission Date: 20060701
  Serious: Yes (Other)
  Sender: FDA-Public Use
  Company Number: IE-JNJFOC-20060102700

PATIENT
  Age: 36 Year
  Sex: Male

DRUGS (1)
  1. CLADRIBINE [Suspect]
     Route: 042

REACTIONS (1)
  - MYELODYSPLASTIC SYNDROME [None]
